FAERS Safety Report 13662334 (Version 1)
Quarter: 2017Q2

REPORT INFORMATION
  Report Type: Report from Study
  Country: US (occurrence: US)
  Receive Date: 20170617
  Receipt Date: 20170617
  Transmission Date: 20170830
  Serious: Yes (Death)
  Sender: FDA-Public Use
  Company Number: US-TORRENT-00003059

PATIENT
  Age: 63 Year
  Sex: Male

DRUGS (6)
  1. BUPROPION. [Suspect]
     Active Substance: BUPROPION
  2. METOPROLOL. [Suspect]
     Active Substance: METOPROLOL
  3. VORTIOXETINE [Suspect]
     Active Substance: VORTIOXETINE
  4. PARACETAMOL [Suspect]
     Active Substance: ACETAMINOPHEN
  5. HYDROCODONE [Suspect]
     Active Substance: HYDROCODONE
  6. AMLODIPINE [Suspect]
     Active Substance: AMLODIPINE BESYLATE

REACTIONS (3)
  - Toxicity to various agents [Fatal]
  - Completed suicide [Fatal]
  - Intentional overdose [None]
